FAERS Safety Report 10648637 (Version 2)
Quarter: 2015Q1

REPORT INFORMATION
  Report Type: Spontaneous
  Country: US (occurrence: US)
  Receive Date: 20141212
  Receipt Date: 20150127
  Transmission Date: 20150720
  Serious: Yes (Other)
  Sender: FDA-Public Use
  Company Number: US-ELI_LILLY_AND_COMPANY-US201412002385

PATIENT
  Sex: Male
  Weight: 82.5 kg

DRUGS (3)
  1. AXIRON [Concomitant]
     Active Substance: TESTOSTERONE
  2. CIALIS [Suspect]
     Active Substance: TADALAFIL
     Indication: ERECTILE DYSFUNCTION
     Dosage: 20 MG, PRN
     Route: 065
  3. CIALIS [Suspect]
     Active Substance: TADALAFIL
     Dosage: 5 MG, QD

REACTIONS (3)
  - Deafness [Not Recovered/Not Resolved]
  - Tinnitus [Recovering/Resolving]
  - Feeling abnormal [Unknown]
